FAERS Safety Report 6009103-1 (Version None)
Quarter: 2008Q4

REPORT INFORMATION
  Report Type: 
  Country: None (occurrence: None)
  Receive Date: 20081216
  Receipt Date: 20081203
  Transmission Date: 20090506
  Serious: Yes (Death, Hospitalization)
  Sender: FDA-Public Use
  Company Number: DEP_00185_2008

PATIENT
  Age: 58 Year
  Sex: Female

DRUGS (2)
  1. METFORMIN (METBAY 500) [Suspect]
     Indication: TYPE 2 DIABETES MELLITUS
     Dosage: 500 MG BID ORAL
     Route: 048
  2. INSULIN [Concomitant]

REACTIONS (10)
  - ACIDOSIS [None]
  - BUNDLE BRANCH BLOCK LEFT [None]
  - CARDIAC ARREST [None]
  - CARDIOGENIC SHOCK [None]
  - CHEST PAIN [None]
  - DYSPNOEA [None]
  - HAEMODIALYSIS [None]
  - PYREXIA [None]
  - RENAL FAILURE ACUTE [None]
  - VOMITING [None]
